FAERS Safety Report 18264977 (Version 1)
Quarter: 2020Q3

REPORT INFORMATION
  Report Type: Spontaneous
  Country: US (occurrence: US)
  Receive Date: 20200914
  Receipt Date: 20200914
  Transmission Date: 20201103
  Serious: No
  Sender: FDA-Public Use
  Company Number: US-UNIQUE PHARMACEUTICAL LABORATORIES-2020RIS00163

PATIENT
  Age: 60 Year
  Sex: Female
  Weight: 81.63 kg

DRUGS (10)
  1. SIMVASTATIN. [Concomitant]
     Active Substance: SIMVASTATIN
     Dosage: 40 MG, 1X/DAY
  2. LOSARTAN. [Concomitant]
     Active Substance: LOSARTAN
     Dosage: 75 MG, 1X/DAY
  3. GLIPIZIDE. [Concomitant]
     Active Substance: GLIPIZIDE
     Dosage: 10 MG, 3X/DAY
  4. HUMULIN N [Concomitant]
     Active Substance: INSULIN HUMAN
     Dosage: 51 USP UNIT, 1X/DAY
  5. HYDROCHLOROTHIAZIDE. [Concomitant]
     Active Substance: HYDROCHLOROTHIAZIDE
     Dosage: 25 MG, 1X/DAY
  6. CETIRIZINE HYDROCHLORIDE. [Suspect]
     Active Substance: CETIRIZINE HYDROCHLORIDE
     Indication: PRURITUS
     Dosage: 10 MG, EVERY 48 HOURS
     Dates: start: 2020
  7. METFORMIN [Concomitant]
     Active Substance: METFORMIN HYDROCHLORIDE
     Dosage: 850 MG, 2X/DAY
  8. ASPIRIN. [Concomitant]
     Active Substance: ASPIRIN
     Dosage: 81 MG, 1X/DAY
  9. CETIRIZINE HYDROCHLORIDE. [Suspect]
     Active Substance: CETIRIZINE HYDROCHLORIDE
     Indication: RHINITIS ALLERGIC
     Dosage: 10 MG, 1X/DAY, AS NEEDED WHEN HER NASAL ALLERGIES BECAME ^TOO MUCH.^
     Route: 048
     Dates: start: 2018, end: 201912
  10. FENOFIBRATE. [Concomitant]
     Active Substance: FENOFIBRATE
     Dosage: 54 MG, 1X/DAY

REACTIONS (5)
  - Dermatitis contact [Not Recovered/Not Resolved]
  - Drug ineffective for unapproved indication [Not Recovered/Not Resolved]
  - Pruritus [Not Recovered/Not Resolved]
  - Rash papular [Recovered/Resolved]
  - Discomfort [Not Recovered/Not Resolved]

NARRATIVE: CASE EVENT DATE: 2020
